FAERS Safety Report 10479528 (Version 1)
Quarter: 2014Q3

REPORT INFORMATION
  Report Type: Spontaneous
  Country: CA (occurrence: CA)
  Receive Date: 20140927
  Receipt Date: 20140927
  Transmission Date: 20150326
  Serious: Yes (Life-Threatening, Hospitalization, Disabling)
  Sender: FDA-Public Use
  Company Number: CA-MERCK-1409CAN009981

PATIENT
  Age: 94 Year
  Sex: Male
  Weight: 31.75 kg

DRUGS (11)
  1. AVODART [Concomitant]
     Active Substance: DUTASTERIDE
  2. HUMULIN NOS [Concomitant]
     Active Substance: INSULIN HUMAN
     Route: 030
  3. CARVEDILOL. [Concomitant]
     Active Substance: CARVEDILOL
  4. HYDROMORPHONE [Concomitant]
     Active Substance: HYDROMORPHONE
  5. LANTUS [Concomitant]
     Active Substance: INSULIN GLARGINE
     Route: 058
  6. INVANZ [Suspect]
     Active Substance: ERTAPENEM SODIUM
     Dosage: 1 G,1 EVERY 24 HOURS
     Route: 042
  7. ACETAMINOPHEN. [Concomitant]
     Active Substance: ACETAMINOPHEN
  8. EFFEXOR XR [Concomitant]
     Active Substance: VENLAFAXINE HYDROCHLORIDE
     Dosage: DOSAGE FORM REPORTED AS CAPSULE EXTENDED RELEASE
  9. FUROSEMIDE. [Concomitant]
     Active Substance: FUROSEMIDE
  10. NITROGLYCERIN. [Concomitant]
     Active Substance: NITROGLYCERIN
     Dosage: UNK
  11. TAMSULOSIN HYDROCHLORIDE. [Concomitant]
     Active Substance: TAMSULOSIN HYDROCHLORIDE

REACTIONS (5)
  - Confusional state [Recovered/Resolved]
  - Dysarthria [Recovered/Resolved]
  - Neurotoxicity [Recovered/Resolved]
  - Asthenia [Recovered/Resolved]
  - Myoclonus [Recovered/Resolved]
